FAERS Safety Report 4509553-6 (Version None)
Quarter: 2004Q4

REPORT INFORMATION
  Report Type: 
  Country: None (occurrence: None)
  Receive Date: 20041119
  Receipt Date: 20041029
  Transmission Date: 20050328
  Serious: Yes (Other)
  Sender: FDA-Public Use
  Company Number: US_0404102637

PATIENT
  Age: 55 Year
  Sex: Male
  Weight: 64 kg

DRUGS (2)
  1. HUMALOG [Suspect]
     Indication: DIABETES MELLITUS
     Dosage: 69 U DAY
     Dates: start: 20040301
  2. HUMALOG [Suspect]

REACTIONS (20)
  - ABDOMINAL DISTENSION [None]
  - ANXIETY [None]
  - BLISTER [None]
  - BLOOD PRESSURE INCREASED [None]
  - DENTAL DISCOMFORT [None]
  - DIABETES MELLITUS INADEQUATE CONTROL [None]
  - EATING DISORDER [None]
  - FEAR [None]
  - GASTRIC DISORDER [None]
  - HEPATITIS [None]
  - INSOMNIA [None]
  - LIMB INJURY [None]
  - NERVOUSNESS [None]
  - PAIN [None]
  - POLLAKIURIA [None]
  - POOR PERIPHERAL CIRCULATION [None]
  - SKIN ULCER [None]
  - STRESS SYMPTOMS [None]
  - TREATMENT NONCOMPLIANCE [None]
  - WEIGHT DECREASED [None]
